FAERS Safety Report 8171529-8 (Version None)
Quarter: 2012Q1

REPORT INFORMATION
  Report Type: 
  Country: None (occurrence: None)
  Receive Date: 20120104
  Receipt Date: 20111110
  Transmission Date: 20120608
  Serious: No
  Sender: FDA-Public Use
  Company Number: 2011HGS-002772

PATIENT
  Age: 41 Year
  Sex: Female
  Weight: 58.9676 kg

DRUGS (6)
  1. PREDNISONE (PFREDNISONE) [Concomitant]
  2. GABAPENTIN [Concomitant]
  3. AMBIEN [Concomitant]
  4. BENLYSTA [Suspect]
     Indication: SYSTEMIC LUPUS ERYTHEMATOSUS
     Dosage: 10 MG/KG, 1 IN 28 D, INTRAVENOUS
     Route: 042
     Dates: start: 20110627
  5. CELEXA [Concomitant]
  6. IMURAN (AZATHIORPINE) [Concomitant]

REACTIONS (2)
  - FATIGUE [None]
  - NO THERAPEUTIC RESPONSE [None]
